FAERS Safety Report 6464251-7 (Version None)
Quarter: 2009Q4

REPORT INFORMATION
  Report Type: 
  Country: None (occurrence: None)
  Receive Date: 20091201
  Receipt Date: 20091130
  Transmission Date: 20100525
  Serious: No
  Sender: FDA-Public Use
  Company Number: US-ROXANE LABORATORIES, INC.-2009-RO-01199RO

PATIENT
  Sex: Male

DRUGS (1)
  1. MEFLOQUINE HCL [Suspect]

REACTIONS (3)
  - ANXIETY [None]
  - DEPRESSION [None]
  - NAUSEA [None]
